FAERS Safety Report 15190292 (Version 1)
Quarter: 2018Q3

REPORT INFORMATION
  Report Type: Spontaneous
  Country: DE (occurrence: DE)
  Receive Date: 20180724
  Receipt Date: 20180724
  Transmission Date: 20181010
  Serious: Yes (Hospitalization, Other)
  Sender: FDA-Public Use
  Company Number: DE-AUROBINDO-AUR-APL-2018-032868

PATIENT
  Age: 58 Year
  Sex: Female
  Weight: 84 kg

DRUGS (13)
  1. FOLINIC ACID [Suspect]
     Active Substance: LEUCOVORIN
     Dosage: 725 MILLIGRAM, 2 WEEK
     Route: 042
     Dates: start: 20160502, end: 20160502
  2. 5?FU                               /00098801/ [Concomitant]
     Active Substance: FLUOROURACIL
     Dosage: 755 MILLIGRAM, ALSO RECEIVED ON 18?APR?2016
     Route: 040
     Dates: start: 20160404, end: 20160502
  3. FERINJECT [Concomitant]
     Active Substance: FERRIC CARBOXYMALTOSE
     Indication: ANAEMIA
     Dosage: DAILY DOSE: 1000 MG MILLGRAM(S) EVERY DAYS
     Route: 042
     Dates: start: 20160406, end: 20160406
  4. 5?FU                               /00098801/ [Concomitant]
     Active Substance: FLUOROURACIL
     Dosage: 4535 MILLIGRAM
     Route: 041
     Dates: start: 20160418, end: 20160420
  5. METOPROLOL. [Concomitant]
     Active Substance: METOPROLOL
     Indication: HYPERTENSION
     Dosage: DAILY DOSE: 95 MG MILLGRAM(S) EVERY DAYS
     Route: 048
     Dates: start: 2014
  6. OXALIPLATIN. [Suspect]
     Active Substance: OXALIPLATIN
     Dosage: 189 MILLIGRAM, 2 WEEK
     Route: 042
     Dates: start: 20160404, end: 20160502
  7. TOREM                              /01036501/ [Concomitant]
     Active Substance: TORSEMIDE
     Indication: HYPERTENSION
     Dosage: 10 MILLIGRAM, DAILY
     Route: 048
     Dates: start: 2014
  8. FOLINIC ACID [Suspect]
     Active Substance: LEUCOVORIN
     Indication: COLORECTAL CANCER METASTATIC
     Dosage: 755 MILLIGRAM, 2 WEEK
     Route: 042
     Dates: start: 20160404, end: 20160418
  9. 5?FU                               /00098801/ [Concomitant]
     Active Substance: FLUOROURACIL
     Indication: COLORECTAL CANCER METASTATIC
     Dosage: 4345 MILLIGRAM
     Route: 041
     Dates: start: 20160502, end: 20160504
  10. 5?FU                               /00098801/ [Concomitant]
     Active Substance: FLUOROURACIL
     Dosage: 4535 MILLIGRAM
     Route: 041
     Dates: start: 20160404, end: 20160406
  11. BEVACIZUMAB. [Suspect]
     Active Substance: BEVACIZUMAB
     Indication: COLORECTAL CANCER METASTATIC
     Dosage: 380 MILLIGRAM, 2 WEEK
     Route: 042
     Dates: start: 20160502, end: 20160502
  12. OXALIPLATIN. [Suspect]
     Active Substance: OXALIPLATIN
     Indication: COLORECTAL CANCER METASTATIC
     Dosage: 181 MILLIGRAM, 2 WEEK
     Route: 042
     Dates: end: 20160502
  13. VALSARTAN. [Concomitant]
     Active Substance: VALSARTAN
     Indication: HYPERTENSION
     Dosage: DAILY DOSE: 320 MG MILLGRAM(S) EVERY DAYS
     Route: 048
     Dates: start: 2014

REACTIONS (3)
  - Seizure [Recovered/Resolved]
  - Posterior reversible encephalopathy syndrome [Recovered/Resolved]
  - Encephalitis [Recovered/Resolved]

NARRATIVE: CASE EVENT DATE: 20160512
